FAERS Safety Report 20725665 (Version 4)
Quarter: 2023Q2

REPORT INFORMATION
  Report Type: Report from Study
  Country: JP (occurrence: JP)
  Receive Date: 20220419
  Receipt Date: 20230531
  Transmission Date: 20230722
  Serious: Yes (Death, Hospitalization, Other)
  Sender: FDA-Public Use
  Company Number: JP-OTSUKA-2022_023644

PATIENT
  Age: 54 Year
  Sex: Female
  Weight: 40 kg

DRUGS (2)
  1. PONATINIB [Suspect]
     Active Substance: PONATINIB
     Indication: Product used for unknown indication
     Dosage: 45 MILLIGRAM, QD
     Route: 048
     Dates: start: 20220131, end: 20220323
  2. FEBUXOSTAT [Concomitant]
     Active Substance: FEBUXOSTAT
     Indication: Hyperuricaemia
     Dosage: 20 MILLIGRAM, QD
     Route: 048
     Dates: start: 20220314

REACTIONS (6)
  - Gastrointestinal stromal tumour [Fatal]
  - Hyperammonaemia [Fatal]
  - Hepatic encephalopathy [Fatal]
  - Aspartate aminotransferase increased [Fatal]
  - Alanine aminotransferase increased [Fatal]
  - Hyperuricaemia [Not Recovered/Not Resolved]

NARRATIVE: CASE EVENT DATE: 20220207
